FAERS Safety Report 5521876-0 (Version None)
Quarter: 2007Q4

REPORT INFORMATION
  Report Type: 
  Country: None (occurrence: None)
  Receive Date: 20071120
  Receipt Date: 20071109
  Transmission Date: 20080405
  Serious: Yes (Hospitalization, Other)
  Sender: FDA-Public Use
  Company Number: CA-JNJFOC-20071104036

PATIENT
  Sex: Female

DRUGS (14)
  1. REMICADE [Suspect]
     Indication: RHEUMATOID ARTHRITIS
     Route: 042
  2. ASPIRIN [Concomitant]
     Route: 048
  3. CALCIUM CARBONATE [Concomitant]
     Route: 048
  4. FERROUS SULFATE TAB [Concomitant]
     Route: 048
  5. ADVAIR DISKUS 100/50 [Concomitant]
  6. FOLIC ACID [Concomitant]
     Route: 048
  7. METHOTREXATE [Concomitant]
     Route: 048
  8. NITROGLYCERIN [Concomitant]
  9. PANTOPRAZOLE SODIUM [Concomitant]
     Route: 048
  10. PINDOLOL [Concomitant]
     Route: 048
  11. QUININE SULFATE [Concomitant]
     Route: 048
  12. RISENDRONATE [Concomitant]
     Route: 048
  13. VITAMIN D [Concomitant]
     Dosage: 1000 UNITS
     Route: 048
  14. WARFARIN SODIUM [Concomitant]
     Route: 048

REACTIONS (4)
  - HAEMATOMA [None]
  - PNEUMONIA [None]
  - TRANSIENT ISCHAEMIC ATTACK [None]
  - UROSEPSIS [None]
